FAERS Safety Report 14044129 (Version 1)
Quarter: 2017Q4

REPORT INFORMATION
  Report Type: Spontaneous
  Country: US (occurrence: US)
  Receive Date: 20171004
  Receipt Date: 20171004
  Transmission Date: 20180321
  Serious: Yes (Other)
  Sender: FDA-Public Use
  Company Number: None

PATIENT
  Sex: Female
  Weight: 81 kg

DRUGS (22)
  1. ELIQUIS [Suspect]
     Active Substance: APIXABAN
     Indication: PULMONARY EMBOLISM
     Dosage: ?          QUANTITY:60 TABLET(S);?
     Route: 048
     Dates: start: 20170908, end: 20171003
  2. XARELTO [Concomitant]
     Active Substance: RIVAROXABAN
  3. NEURONTIN [Concomitant]
     Active Substance: GABAPENTIN
  4. COMPAZINE [Concomitant]
     Active Substance: PROCHLORPERAZINE MALEATE
  5. PHENERGAN [Concomitant]
     Active Substance: PROMETHAZINE HYDROCHLORIDE
  6. HYSINGLA ER [Concomitant]
     Active Substance: HYDROCODONE BITARTRATE
  7. FIORICET [Concomitant]
     Active Substance: ACETAMINOPHEN\BUTALBITAL\CAFFEINE
  8. NEXIUM [Concomitant]
     Active Substance: ESOMEPRAZOLE MAGNESIUM
  9. LION^S MANE [Concomitant]
  10. ATORVOSTATIN [Concomitant]
     Active Substance: ATORVASTATIN
  11. NADOLOL. [Concomitant]
     Active Substance: NADOLOL
  12. ZOFRAN [Concomitant]
     Active Substance: ONDANSETRON HYDROCHLORIDE
  13. CARAFATE [Concomitant]
     Active Substance: SUCRALFATE
  14. KLONOPIN [Concomitant]
     Active Substance: CLONAZEPAM
  15. AMERGE [Concomitant]
     Active Substance: NARATRIPTAN HYDROCHLORIDE
  16. WALKER [Concomitant]
  17. VITAMIN B COMPLEX [Concomitant]
     Active Substance: CYANOCOBALAMIN\DEXPANTHENOL\NIACINAMIDE\PYRIDOXINE HYDROCHLORIDE\RIBOFLAVIN 5^-PHOSPHATE SODIUM\THIAMINE HYDROCHLORIDE\VITAMIN B COMPLEX
  18. LEXAPRO [Concomitant]
     Active Substance: ESCITALOPRAM OXALATE
  19. BACLOFEN. [Concomitant]
     Active Substance: BACLOFEN
  20. ANKLE BRACE [Concomitant]
  21. TIZANIDINE. [Concomitant]
     Active Substance: TIZANIDINE
  22. VITAMIN D [Concomitant]
     Active Substance: CHOLECALCIFEROL

REACTIONS (1)
  - Migraine [None]

NARRATIVE: CASE EVENT DATE: 20170911
